FAERS Safety Report 6619295-9 (Version None)
Quarter: 2010Q1

REPORT INFORMATION
  Report Type: 
  Country: None (occurrence: None)
  Receive Date: 20100303
  Receipt Date: 20100208
  Transmission Date: 20100710
  Serious: Yes (Disabling)
  Sender: FDA-Public Use
  Company Number: 511441

PATIENT
  Age: 42 Year
  Sex: Male

DRUGS (9)
  1. PROPOFOL [Suspect]
     Indication: ANAESTHESIA
     Dosage: 200 MG, INTRAVENOUS
     Route: 042
     Dates: start: 20081215, end: 20081216
  2. AUGMENTIN '125' [Suspect]
     Indication: PROPHYLAXIS
     Dosage: 2 G, INTRAVENOUS
     Route: 042
     Dates: start: 20081216, end: 20081216
  3. (ENANTYUM) [Suspect]
     Indication: PROCEDURAL PAIN
     Dosage: ORAL
     Route: 048
     Dates: start: 20081216, end: 20081216
  4. FENTANYL CITRATE [Suspect]
     Indication: ANAESTHESIA
     Dosage: 800 MG, INTRAVENOUS
     Route: 042
     Dates: start: 20081216, end: 20081216
  5. HALOPERIDOL [Concomitant]
  6. (RANITIDINE) [Concomitant]
  7. OMEPRAZOLE [Concomitant]
  8. (NOLOTIL /00039502/) [Concomitant]
  9. (PERFALGAN) [Concomitant]

REACTIONS (1)
  - HEPATITIS [None]
